FAERS Safety Report 6834913-8 (Version None)
Quarter: 2010Q3

REPORT INFORMATION
  Report Type: 
  Country: None (occurrence: None)
  Receive Date: 20100712
  Receipt Date: 20080415
  Transmission Date: 20110219
  Serious: Yes (Hospitalization, Other)
  Sender: FDA-Public Use
  Company Number: US-PFIZER INC-2007026279

PATIENT
  Sex: Male
  Weight: 83.9 kg

DRUGS (3)
  1. CHANTIX [Suspect]
     Indication: SMOKING CESSATION THERAPY
     Dates: start: 20070201
  2. GLUCOPHAGE [Concomitant]
     Indication: DIABETES MELLITUS
  3. BENICAR [Concomitant]

REACTIONS (3)
  - CARDIAC FLUTTER [None]
  - CHEST PAIN [None]
  - PALPITATIONS [None]
